FAERS Safety Report 10302223 (Version 5)
Quarter: 2015Q1

REPORT INFORMATION
  Report Type: Report from Study
  Country: US (occurrence: US)
  Receive Date: 20140714
  Receipt Date: 20150324
  Transmission Date: 20150720
  Serious: Yes (Other)
  Sender: FDA-Public Use
  Company Number: US-SA-2014SA090544

PATIENT
  Age: 40 Year
  Sex: Female

DRUGS (1)
  1. AUBAGIO [Suspect]
     Active Substance: TERIFLUNOMIDE
     Indication: MULTIPLE SCLEROSIS
     Dosage: DOSE: 7(UNITS NOT SPECIFIED)
     Route: 048
     Dates: start: 20121129

REACTIONS (4)
  - Central nervous system lesion [Not Recovered/Not Resolved]
  - Dysgraphia [Unknown]
  - Intervertebral disc protrusion [Not Recovered/Not Resolved]
  - Fine motor delay [Unknown]

NARRATIVE: CASE EVENT DATE: 2013
